FAERS Safety Report 16799258 (Version 1)
Quarter: 2019Q3

REPORT INFORMATION
  Report Type: Spontaneous
  Country: US (occurrence: US)
  Receive Date: 20190722
  Receipt Date: 20190722
  Transmission Date: 20191005
  Serious: Yes (Other)
  Sender: FDA-Public Use
  Company Number: None

PATIENT
  Age: 86 Year
  Sex: Female

DRUGS (1)
  1. ELIQUIS [Suspect]
     Active Substance: APIXABAN
     Indication: PULMONARY THROMBOSIS
     Dates: start: 20181210, end: 20190610

REACTIONS (1)
  - Unevaluable event [None]

NARRATIVE: CASE EVENT DATE: 20190419
